FAERS Safety Report 21324346 (Version 1)
Quarter: 2022Q3

REPORT INFORMATION
  Report Type: Spontaneous
  Country: US (occurrence: US)
  Receive Date: 20220912
  Receipt Date: 20220912
  Transmission Date: 20221027
  Serious: No
  Sender: FDA-Public Use
  Company Number: US-BRISTOL-MYERS SQUIBB COMPANY-2022-099151

PATIENT
  Age: 53 Year
  Sex: Female
  Weight: 127.96 kg

DRUGS (1)
  1. REVLIMID [Suspect]
     Active Substance: LENALIDOMIDE
     Indication: Plasma cell myeloma
     Dosage: 3 WEEKS, 1WEEK OFF
     Route: 048

REACTIONS (2)
  - Influenza like illness [Unknown]
  - Malaise [Unknown]
